FAERS Safety Report 11897310 (Version 2)
Quarter: 2016Q1

REPORT INFORMATION
  Report Type: Spontaneous
  Country: US (occurrence: US)
  Receive Date: 20160108
  Receipt Date: 20160314
  Transmission Date: 20160526
  Serious: No
  Sender: FDA-Public Use
  Company Number: US-BRISTOL-MYERS SQUIBB COMPANY-BMS-2016-000121

PATIENT
  Sex: Female

DRUGS (2)
  1. SPRYCEL [Suspect]
     Active Substance: DASATINIB
     Indication: CHRONIC MYELOID LEUKAEMIA
     Dosage: 100 MG, QD
     Route: 048
     Dates: start: 20110921
  2. SPRYCEL [Suspect]
     Active Substance: DASATINIB
     Dosage: 100 UNK, UNK
     Route: 048
     Dates: start: 20110922

REACTIONS (2)
  - Drug dose omission [Unknown]
  - Dry mouth [Unknown]
